FAERS Safety Report 16609519 (Version 1)
Quarter: 2019Q3

REPORT INFORMATION
  Report Type: Spontaneous
  Country: US (occurrence: US)
  Receive Date: 20190721
  Receipt Date: 20190721
  Transmission Date: 20191004
  Serious: Yes (Disabling)
  Sender: FDA-Public Use
  Company Number: None

PATIENT
  Age: 48 Year
  Sex: Male
  Weight: 74.25 kg

DRUGS (15)
  1. DEXILANT [Concomitant]
     Active Substance: DEXLANSOPRAZOLE
  2. CRESTOR [Concomitant]
     Active Substance: ROSUVASTATIN CALCIUM
  3. NOVOLOG [Concomitant]
     Active Substance: INSULIN ASPART
  4. CLINORIL [Concomitant]
     Active Substance: SULINDAC
  5. DIOVAN [Concomitant]
     Active Substance: VALSARTAN
  6. LYRICA [Concomitant]
     Active Substance: PREGABALIN
  7. INSULIN PUMP [Concomitant]
     Active Substance: INSULIN NOS
  8. CARDIZEM LA [Concomitant]
     Active Substance: DILTIAZEM HYDROCHLORIDE
  9. HYDROCHLOROTHIAZIDE. [Concomitant]
     Active Substance: HYDROCHLOROTHIAZIDE
  10. FLOMAX [Concomitant]
     Active Substance: TAMSULOSIN HYDROCHLORIDE
  11. VITAMIN D3 [Concomitant]
     Active Substance: CHOLECALCIFEROL
  12. ZANTAC [Concomitant]
     Active Substance: RANITIDINE HYDROCHLORIDE
  13. LEVOFLOXACIN ALSO KNOWN AS LEVAQUIN [Suspect]
     Active Substance: LEVOFLOXACIN
     Indication: PROSTATITIS
     Dosage: ?          QUANTITY:1 TABLET(S);?
     Route: 048
     Dates: start: 20180630, end: 20181031
  14. COQ10 [Concomitant]
     Active Substance: UBIDECARENONE
  15. MAGNESIUM [Concomitant]
     Active Substance: MAGNESIUM

REACTIONS (10)
  - Tendon disorder [None]
  - Clostridium test positive [None]
  - Arthropathy [None]
  - Connective tissue disorder [None]
  - Amnesia [None]
  - Abdominal pain [None]
  - Asthenia [None]
  - Nerve injury [None]
  - Myalgia [None]
  - Joint swelling [None]

NARRATIVE: CASE EVENT DATE: 20180630
